FAERS Safety Report 22630844 (Version 1)
Quarter: 2023Q2

REPORT INFORMATION
  Report Type: Spontaneous
  Country: US (occurrence: None)
  Receive Date: 20230622
  Receipt Date: 20230622
  Transmission Date: 20230721
  Serious: No
  Sender: FDA-Public Use
  Company Number: None

PATIENT

DRUGS (2)
  1. METFORMIN HYDROCHLORIDE [Suspect]
     Active Substance: METFORMIN HYDROCHLORIDE
  2. LOSARTAN POTASSIUM [Suspect]
     Active Substance: LOSARTAN POTASSIUM

REACTIONS (6)
  - Product dispensing error [None]
  - Fatigue [None]
  - Dizziness [None]
  - Glycosylated haemoglobin increased [None]
  - Product commingling [None]
  - Product dose omission issue [None]

NARRATIVE: CASE EVENT DATE: 20230127
